FAERS Safety Report 5874848-0 (Version None)
Quarter: 2008Q3

REPORT INFORMATION
  Report Type: 
  Country: None (occurrence: None)
  Receive Date: 20080904
  Receipt Date: 20060908
  Transmission Date: 20090109
  Serious: Yes (Other)
  Sender: FDA-Public Use
  Company Number: 1-14271209

PATIENT
  Age: 14 Month
  Sex: Male

DRUGS (5)
  1. BUPHENYL [Suspect]
     Indication: ARGININOSUCCINATE SYNTHETASE DEFICIENCY
     Dosage: 40 MG/KG/DAY ORALLY
     Route: 048
     Dates: start: 20050501, end: 20060710
  2. BUPHENYL [Suspect]
     Indication: ARGININOSUCCINATE SYNTHETASE DEFICIENCY
     Dosage: 40 MG/KG/DAY ORALLY
     Route: 048
     Dates: start: 20060715, end: 20060808
  3. BUPHENYL [Suspect]
     Indication: ARGININOSUCCINATE SYNTHETASE DEFICIENCY
     Dosage: 40 MG/KG/DAY ORALLY
     Route: 048
     Dates: start: 20060901, end: 20061001
  4. ESSENTIAL AMINO ACIDS [Concomitant]
  5. ARGININE [Concomitant]

REACTIONS (7)
  - ALANINE AMINOTRANSFERASE INCREASED [None]
  - ASPARTATE AMINOTRANSFERASE INCREASED [None]
  - BLOOD ALBUMIN DECREASED [None]
  - COAGULOPATHY [None]
  - DIARRHOEA [None]
  - DRUG TOXICITY [None]
  - INTERNATIONAL NORMALISED RATIO INCREASED [None]
